FAERS Safety Report 9324695 (Version 1)
Quarter: 2013Q2

REPORT INFORMATION
  Report Type: Spontaneous
  Country: FR (occurrence: FR)
  Receive Date: 20130603
  Receipt Date: 20130603
  Transmission Date: 20140414
  Serious: Yes (Other)
  Sender: FDA-Public Use
  Company Number: FR-GLAXOSMITHKLINE-B0894964A

PATIENT
  Age: 57 Year
  Sex: Female

DRUGS (4)
  1. ZELITREX [Suspect]
     Indication: PRODUCT USED FOR UNKNOWN INDICATION
     Route: 048
     Dates: end: 20130419
  2. ROCEPHINE [Suspect]
     Indication: PRODUCT USED FOR UNKNOWN INDICATION
     Dosage: 2G PER DAY
     Route: 042
     Dates: start: 20130409, end: 20130415
  3. ORAMORPH [Concomitant]
     Route: 048
     Dates: start: 20130412, end: 20130415
  4. MELPHALAN [Concomitant]
     Indication: CHEMOTHERAPY
     Dates: start: 20130403

REACTIONS (3)
  - Disturbance in attention [Recovered/Resolved]
  - Psychomotor retardation [Recovered/Resolved]
  - Toxic encephalopathy [Recovered/Resolved]
